FAERS Safety Report 6185081-X (Version None)
Quarter: 2009Q2

REPORT INFORMATION
  Report Type: 
  Country: None (occurrence: None)
  Receive Date: 20090511
  Receipt Date: 20090507
  Transmission Date: 20091009
  Serious: Yes (Life-Threatening)
  Sender: FDA-Public Use
  Company Number: KR-JNJFOC-20090501820

PATIENT
  Age: 53 Year
  Sex: Female

DRUGS (4)
  1. CRAVIT [Suspect]
     Indication: URINARY TRACT INFECTION
     Route: 042
  2. AKICIN [Concomitant]
     Route: 065
  3. TYLENOL [Concomitant]
     Route: 048
  4. TRIDOL [Concomitant]
     Route: 042

REACTIONS (4)
  - BRAIN DEATH [None]
  - CARDIAC ARREST [None]
  - CHEST DISCOMFORT [None]
  - NAUSEA [None]
